FAERS Safety Report 14816536 (Version 1)
Quarter: 2018Q2

REPORT INFORMATION
  Report Type: Spontaneous
  Country: US (occurrence: US)
  Receive Date: 20180426
  Receipt Date: 20180426
  Transmission Date: 20180711
  Serious: No
  Sender: FDA-Public Use
  Company Number: US-009507513-1804USA002173

PATIENT
  Age: 29 Year

DRUGS (1)
  1. NEXPLANON [Suspect]
     Active Substance: ETONOGESTREL
     Dosage: 1 DF, 3-4 YEARS
     Route: 059
     Dates: start: 2014, end: 20180329

REACTIONS (2)
  - Incorrect drug administration duration [Unknown]
  - Complication associated with device [Recovered/Resolved]
